FAERS Safety Report 15046059 (Version 1)
Quarter: 2018Q2

REPORT INFORMATION
  Report Type: Spontaneous
  Country: DE (occurrence: DE)
  Receive Date: 20180621
  Receipt Date: 20180621
  Transmission Date: 20180711
  Serious: Yes (Hospitalization)
  Sender: FDA-Public Use
  Company Number: DE-TEVA-2018-DE-911129

PATIENT
  Age: 79 Year
  Sex: Male
  Weight: 90 kg

DRUGS (8)
  1. METOPROLOLSUCCINAT 47.5MG [Suspect]
     Active Substance: METOPROLOL SUCCINATE
     Dosage: 47.5 MG, 0.5-0-0.5-0, TABLETTEN
     Route: 048
  2. THYRONAJOD 100 [Concomitant]
     Dosage: 100|196.2 ?G, 1-0-0-0, TABLETTEN
     Route: 048
  3. VIGANTOLETTEN 1000I.E. [Concomitant]
     Dosage: 1000 IE, 1-0-0-0, TABLETTEN
     Route: 048
  4. ALLOPURINOL. [Concomitant]
     Active Substance: ALLOPURINOL
     Dosage: 300 MG, 1-0-0-0, TABLETTEN
     Route: 048
  5. TRIAMTEREN [Concomitant]
     Active Substance: TRIAMTERENE
     Dosage: 50 MG, 0.5-0-0-0, TABLETTEN
     Route: 048
  6. RAMIPRIL. [Concomitant]
     Active Substance: RAMIPRIL
     Dosage: 2.5 MG, 0-0-0.5-0, TABLETTEN
     Route: 048
  7. HCT [Concomitant]
     Active Substance: HYDROCHLOROTHIAZIDE
     Dosage: 25 MG, 0.5-0-0-0, TABLETTEN
     Route: 048
  8. MARCUMAR [Concomitant]
     Active Substance: PHENPROCOUMON
     Dosage: 3 MG, NACH INR, TABLETTEN
     Route: 048

REACTIONS (5)
  - Nausea [Unknown]
  - Dizziness [Unknown]
  - Circulatory collapse [Unknown]
  - Cold sweat [Unknown]
  - Bradycardia [Unknown]
